FAERS Safety Report 16971310 (Version 1)
Quarter: 2019Q4

REPORT INFORMATION
  Report Type: Spontaneous
  Country: US (occurrence: US)
  Receive Date: 20191029
  Receipt Date: 20191029
  Transmission Date: 20200122
  Serious: No
  Sender: FDA-Public Use
  Company Number: US-EMD SERONO-9124400

PATIENT

DRUGS (3)
  1. MENOPUR [Suspect]
     Active Substance: FOLLITROPIN\LUTEINIZING HORMONE
     Indication: PRODUCT USED FOR UNKNOWN INDICATION
     Dosage: DOSE: 75 (UNSPECIFIED UNITS)
  2. CETROTIDE [Suspect]
     Active Substance: CETRORELIX ACETATE
     Indication: PRODUCT USED FOR UNKNOWN INDICATION
     Dosage: DOSE: 0.25 (UNSPECIFIED UNITS)
  3. FOLLISTIM [Suspect]
     Active Substance: FOLLITROPIN
     Indication: PRODUCT USED FOR UNKNOWN INDICATION
     Dosage: DOSE: 150 (UNSPECIFIED UNITS)

REACTIONS (3)
  - Adverse drug reaction [Unknown]
  - Fear of injection [Unknown]
  - Injection site discolouration [Unknown]
